FAERS Safety Report 5143962-X (Version None)
Quarter: 2006Q4

REPORT INFORMATION
  Report Type: 
  Country: None (occurrence: None)
  Receive Date: 20061106
  Receipt Date: 20061027
  Transmission Date: 20070319
  Serious: Yes (Hospitalization)
  Sender: FDA-Public Use
  Company Number: FR-AVENTIS-200613859FR

PATIENT
  Age: 63 Year
  Sex: Male

DRUGS (6)
  1. LOVENOX [Suspect]
     Indication: THROMBOSIS PROPHYLAXIS
     Route: 058
     Dates: start: 20060901, end: 20061002
  2. DIAMICRON [Concomitant]
     Indication: DIABETES MELLITUS
  3. KARDEGIC                           /00002703/ [Concomitant]
     Route: 048
     Dates: start: 20060901
  4. COVERSYL                           /00790701/ [Concomitant]
     Indication: ESSENTIAL HYPERTENSION
     Route: 048
  5. NEXIUM [Concomitant]
     Indication: DRUG USE FOR UNKNOWN INDICATION
     Route: 048
  6. PLAVIX [Concomitant]
     Route: 048
     Dates: start: 20060901

REACTIONS (1)
  - THROMBOCYTHAEMIA [None]
